FAERS Safety Report 4825144-1 (Version None)
Quarter: 2005Q4

REPORT INFORMATION
  Report Type: 
  Country: None (occurrence: None)
  Receive Date: 20051109
  Receipt Date: 20051031
  Transmission Date: 20060501
  Serious: Yes (Death)
  Sender: FDA-Public Use
  Company Number: GXKR2005GB01901

PATIENT
  Age: 74 Year
  Sex: Male

DRUGS (12)
  1. CLARITHROMYCIN [Suspect]
     Indication: BACTERIAL INFECTION
     Dosage: 250 MG, BID, ORAL
     Route: 048
  2. SPIRIVA [Suspect]
     Dosage: 18 MCG, QD, RESPIRATORY
     Route: 055
  3. AMITRIPTYLINE HCL [Suspect]
     Dosage: 25 MG, QD, ORAL
     Route: 048
  4. MENTHOL (MENTHOL) [Suspect]
     Dosage: RESPIRATORY
     Route: 055
  5. OXYGEN (OXYGEN) [Suspect]
     Dosage: 1360 L, RESPIRATORY
     Route: 055
  6. PARACETAMOL (PARACETAMOL) [Suspect]
     Dosage: 500 MG, QID, ORAL
     Route: 048
  7. PREDNISONE [Suspect]
     Dosage: 5 MG, QD, ORAL
     Route: 048
  8. ALBUTEROL [Suspect]
     Dosage: 100 MCG, RESPIRATORY
     Route: 055
  9. SERETIDE DISKUS (FLUTICASONE PROPIONATE, SALMETEROL XINAFOATE) [Suspect]
     Dosage: 2 PUFFS, BID, RESPIRATORY
     Route: 055
  10. SUMATRIPTAN SUCCINATE [Suspect]
     Dosage: 20 MG/0.1 ML, AS DIRECTED, NASAL
     Route: 045
  11. VERAPAMIL [Suspect]
     Dosage: 120 MG, TID, ORAL
     Route: 048
  12. EUCALYPTUS GLOBULUS (EUCALYPTUS GLOBULUS) [Suspect]
     Dosage: RESPIRATORY
     Route: 055

REACTIONS (2)
  - CHRONIC OBSTRUCTIVE PULMONARY DISEASE [None]
  - LOWER RESPIRATORY TRACT INFECTION [None]
